FAERS Safety Report 16846052 (Version 1)
Quarter: 2019Q3

REPORT INFORMATION
  Report Type: Spontaneous
  Country: US (occurrence: US)
  Receive Date: 20190924
  Receipt Date: 20190924
  Transmission Date: 20191005
  Serious: No
  Sender: FDA-Public Use
  Company Number: US-009507513-1909USA009061

PATIENT
  Age: 76 Year
  Sex: Female

DRUGS (1)
  1. ASMANEX HFA [Suspect]
     Active Substance: MOMETASONE FUROATE
     Indication: ASTHMA
     Dosage: 120 DOSAGE FORM
     Dates: start: 201809

REACTIONS (2)
  - Sinus disorder [Recovered/Resolved]
  - Product quality issue [Unknown]
